FAERS Safety Report 5296769-7 (Version None)
Quarter: 2007Q2

REPORT INFORMATION
  Report Type: 
  Country: None (occurrence: None)
  Receive Date: 20070413
  Receipt Date: 20070409
  Transmission Date: 20071010
  Serious: Yes (Hospitalization)
  Sender: FDA-Public Use
  Company Number: US-ALLERGAN-0703504US

PATIENT
  Age: 40 Year
  Sex: Female

DRUGS (3)
  1. BOTOX [Suspect]
     Indication: SKIN WRINKLING
     Dosage: 100 UNITS, SINGLE
     Route: 023
     Dates: start: 20070201, end: 20070201
  2. BOTOX [Suspect]
     Dosage: 36 UNITS, SINGLE
     Route: 030
     Dates: start: 20070330, end: 20070330
  3. THYROID MEDICATION (NOS) [Concomitant]
     Indication: DRUG USE FOR UNKNOWN INDICATION

REACTIONS (4)
  - FATIGUE [None]
  - HEADACHE [None]
  - PYREXIA [None]
  - UNRESPONSIVE TO STIMULI [None]
